FAERS Safety Report 5157798-7 (Version None)
Quarter: 2006Q4

REPORT INFORMATION
  Report Type: 
  Country: None (occurrence: None)
  Receive Date: 20061116
  Receipt Date: 20061107
  Transmission Date: 20070319
  Serious: Yes (Death)
  Sender: FDA-Public Use
  Company Number: 2006137039

PATIENT
  Age: 90 Year
  Sex: Female

DRUGS (1)
  1. CELEBREX [Suspect]
     Indication: PAIN
     Dosage: 200 MG (200 MG, 1 IN 1 D), ORAL
     Route: 048
     Dates: start: 20050101, end: 20050101

REACTIONS (1)
  - DEATH [None]
